FAERS Safety Report 13535130 (Version 2)
Quarter: 2017Q2

REPORT INFORMATION
  Report Type: Spontaneous
  Country: US (occurrence: US)
  Receive Date: 20170511
  Receipt Date: 20170620
  Transmission Date: 20170830
  Serious: Yes (Other)
  Sender: FDA-Public Use
  Company Number: US-AMGEN-USASP2017069794

PATIENT
  Sex: Female

DRUGS (1)
  1. NPLATE [Suspect]
     Active Substance: ROMIPLOSTIM
     Indication: MYELODYSPLASTIC SYNDROME
     Dosage: UNK
     Route: 065
     Dates: start: 201705

REACTIONS (4)
  - Off label use [Unknown]
  - Immunosuppression [Unknown]
  - Platelet count abnormal [Unknown]
  - Deafness bilateral [Recovered/Resolved]

NARRATIVE: CASE EVENT DATE: 201705
